FAERS Safety Report 10571178 (Version 1)
Quarter: 2014Q4

REPORT INFORMATION
  Report Type: Spontaneous
  Country: DE (occurrence: DE)
  Receive Date: 20141107
  Receipt Date: 20141107
  Transmission Date: 20150529
  Serious: Yes (Other)
  Sender: FDA-Public Use
  Company Number: DE-BRISTOL-MYERS SQUIBB COMPANY-21542337

PATIENT
  Age: 52 Year
  Sex: Female

DRUGS (1)
  1. LITALIR CAPS 500 MG [Suspect]
     Active Substance: HYDROXYUREA
     Indication: ESSENTIAL THROMBOCYTHAEMIA

REACTIONS (1)
  - Osteonecrosis [Not Recovered/Not Resolved]
